FAERS Safety Report 6998120-0 (Version None)
Quarter: 2010Q3

REPORT INFORMATION
  Report Type: 
  Country: None (occurrence: None)
  Receive Date: 20100920
  Receipt Date: 20100517
  Transmission Date: 20110219
  Serious: Yes (Disabling)
  Sender: FDA-Public Use
  Company Number: US-ASTRAZENECA-2007UW09123

PATIENT
  Sex: Male
  Weight: 93.4 kg

DRUGS (2)
  1. SEROQUEL [Suspect]
     Route: 048
     Dates: start: 20030405
  2. LORAZEPAM [Concomitant]
     Route: 048
     Dates: start: 20030405

REACTIONS (1)
  - DIABETES MELLITUS [None]
